FAERS Safety Report 8406611-0 (Version None)
Quarter: 2012Q2

REPORT INFORMATION
  Report Type: 
  Country: None (occurrence: None)
  Receive Date: 20120604
  Receipt Date: 20120523
  Transmission Date: 20120825
  Serious: Yes (Death, Hospitalization, Other)
  Sender: FDA-Public Use
  Company Number: CO-ELI_LILLY_AND_COMPANY-CO201204003520

PATIENT
  Age: 74 Year
  Sex: Female

DRUGS (2)
  1. CALCIUM W/VITAMIN D                /06836201/ [Concomitant]
     Indication: SUPPLEMENTATION THERAPY
  2. FORTEO [Suspect]
     Indication: OSTEOPOROSIS
     Dosage: 20 UG, QD
     Route: 058
     Dates: start: 20120205, end: 20120309

REACTIONS (10)
  - DEPRESSED MOOD [None]
  - FALL [None]
  - CONVULSION [None]
  - HEPATIC CANCER METASTATIC [None]
  - LUNG CANCER METASTATIC [None]
  - DYSPNOEA [None]
  - PULMONARY OEDEMA [None]
  - HIP FRACTURE [None]
  - SWELLING [None]
  - DIET REFUSAL [None]
